FAERS Safety Report 4333638-0 (Version None)
Quarter: 2004Q2

REPORT INFORMATION
  Report Type: 
  Country: None (occurrence: None)
  Receive Date: 20040405
  Receipt Date: 20040405
  Transmission Date: 20050107
  Serious: Yes (Hospitalization)
  Sender: FDA-Public Use
  Company Number: None

PATIENT
  Sex: Female
  Weight: 64 kg

DRUGS (1)
  1. ZYVOX [Suspect]
     Indication: STAPHYLOCOCCAL BACTERAEMIA
     Dosage: 600 MG IV Q 12 HOURS
     Route: 042

REACTIONS (1)
  - HYPERSENSITIVITY [None]
